FAERS Safety Report 7392099-8 (Version None)
Quarter: 2011Q2

REPORT INFORMATION
  Report Type: 
  Country: None (occurrence: None)
  Receive Date: 20110404
  Receipt Date: 20110325
  Transmission Date: 20111010
  Serious: Yes (Death, Hospitalization)
  Sender: FDA-Public Use
  Company Number: A0773181A

PATIENT
  Age: 62 Year
  Sex: Male
  Weight: 136.4 kg

DRUGS (7)
  1. CLOPIDOGREL [Concomitant]
  2. GLYBURIDE [Concomitant]
  3. IRON [Concomitant]
  4. INSULIN [Concomitant]
  5. AVANDIA [Suspect]
     Indication: DIABETES MELLITUS
     Dosage: 8MG TWICE PER DAY
     Route: 048
     Dates: start: 20010701, end: 20080101
  6. ASPIRIN [Concomitant]
  7. METFORMIN HCL [Concomitant]

REACTIONS (26)
  - OEDEMA PERIPHERAL [None]
  - ARTERIOSCLEROSIS CORONARY ARTERY [None]
  - VENTRICULAR HYPOKINESIA [None]
  - CLOSTRIDIUM DIFFICILE COLITIS [None]
  - ASTHENIA [None]
  - HYPOTENSION [None]
  - ABDOMINAL DISTENSION [None]
  - ABDOMINAL PAIN [None]
  - CARDIO-RESPIRATORY ARREST [None]
  - WOUND INFECTION [None]
  - LEG AMPUTATION [None]
  - CORONARY ARTERY DISEASE [None]
  - DYSPNOEA PAROXYSMAL NOCTURNAL [None]
  - GASTROINTESTINAL NEOPLASM [None]
  - RENAL FAILURE [None]
  - MYOCARDIAL INFARCTION [None]
  - CHEST PAIN [None]
  - CORONARY ARTERY STENOSIS [None]
  - ATRIAL FIBRILLATION [None]
  - URINE OUTPUT DECREASED [None]
  - CARDIOGENIC SHOCK [None]
  - SEPSIS [None]
  - CARDIAC FAILURE CONGESTIVE [None]
  - BLOOD CREATININE INCREASED [None]
  - GASTROINTESTINAL INFECTION [None]
  - DIARRHOEA [None]
